FAERS Safety Report 18341182 (Version 5)
Quarter: 2021Q1

REPORT INFORMATION
  Report Type: Report from Study
  Country: US (occurrence: US)
  Receive Date: 20201003
  Receipt Date: 20210318
  Transmission Date: 20210419
  Serious: Yes (Other)
  Sender: FDA-Public Use
  Company Number: NVSC2020US263083

PATIENT
  Age: 69 Year
  Sex: Male
  Weight: 112.1 kg

DRUGS (20)
  1. KYMRIAH [Suspect]
     Active Substance: TISAGENLECLEUCEL
     Indication: HIGH-GRADE B-CELL LYMPHOMA
     Dosage: 33 ML, ONCE/SINGLE
     Route: 042
     Dates: start: 20200608
  2. ZOFRAN [Concomitant]
     Active Substance: ONDANSETRON HYDROCHLORIDE
     Indication: ANTIEMETIC SUPPORTIVE CARE
     Dosage: 8 MG, Q8H (PRN)
     Route: 042
     Dates: start: 20200609, end: 20200609
  3. ZOVIRAX [Concomitant]
     Active Substance: ACYCLOVIR
     Indication: ANTIVIRAL PROPHYLAXIS
     Dosage: 800 MG, BID
     Route: 048
     Dates: start: 20200604, end: 20200716
  4. VANTIN [Concomitant]
     Active Substance: CEFPODOXIME PROXETIL
     Indication: ANTIBIOTIC PROPHYLAXIS
     Dosage: 200 MG, BID
     Route: 048
     Dates: start: 20200608, end: 20200624
  5. AFRIN [Concomitant]
     Active Substance: OXYMETAZOLINE
     Indication: HYPERSENSITIVITY
     Dosage: 2 SPRAYS/EACH NARE
     Route: 055
     Dates: start: 20200612, end: 20200612
  6. ASAPRIN [Concomitant]
     Active Substance: ASPIRIN
     Indication: ANTICOAGULANT THERAPY
     Dosage: 81 MG, QD
     Route: 048
     Dates: start: 20200619, end: 20200622
  7. CYCLOPHOSPHAMIDE. [Concomitant]
     Active Substance: CYCLOPHOSPHAMIDE
     Indication: CHEMOTHERAPY
     Dosage: UNK
     Route: 065
  8. FLONASE [Concomitant]
     Active Substance: FLUTICASONE PROPIONATE
     Indication: HYPERSENSITIVITY
     Dosage: 50 MCG QD PRN
     Route: 045
     Dates: start: 20200608, end: 20200622
  9. KEPPRA [Concomitant]
     Active Substance: LEVETIRACETAM
     Indication: SEIZURE PROPHYLAXIS
     Dosage: 750 MG, BID
     Route: 048
     Dates: start: 20200608, end: 20200716
  10. FLUDARABINE [Concomitant]
     Active Substance: FLUDARABINE PHOSPHATE
     Indication: CHEMOTHERAPY
     Dosage: UNK
     Route: 065
  11. DIPHENE [Concomitant]
     Indication: PROPHYLAXIS
     Dosage: 12.5 MG X1
     Route: 048
     Dates: start: 20200608, end: 20200608
  12. LOVENOX [Concomitant]
     Active Substance: ENOXAPARIN SODIUM
     Indication: ANTICOAGULANT THERAPY
     Dosage: 40 MG, QD
     Route: 065
     Dates: start: 20200618, end: 20200621
  13. XARELTO [Concomitant]
     Active Substance: RIVAROXABAN
     Indication: ANTICOAGULANT THERAPY
     Dosage: 15 MG, QD
     Route: 048
     Dates: start: 20191208
  14. CLARITIN [Concomitant]
     Active Substance: LORATADINE
     Indication: HYPERSENSITIVITY
     Dosage: 5 MG, BID
     Route: 048
     Dates: start: 20200613, end: 20200622
  15. ATIVAN [Concomitant]
     Active Substance: LORAZEPAM
     Indication: INSOMNIA
     Dosage: 0.5 MG, PRN
     Route: 048
     Dates: start: 20200615, end: 20200615
  16. PENTAMIDINE [Concomitant]
     Active Substance: PENTAMIDINE
     Indication: ANTIFUNGAL PROPHYLAXIS
     Dosage: 300 NGX1
     Route: 042
     Dates: start: 20200606, end: 20200606
  17. K?DUR [Concomitant]
     Active Substance: POTASSIUM CHLORIDE
     Indication: ELECTROLYTE SUBSTITUTION THERAPY
     Dosage: 20 MEQ QD PRN
     Route: 048
     Dates: start: 20200608, end: 20200621
  18. TENORMIN [Concomitant]
     Active Substance: ATENOLOL
     Indication: HYPERTENSION
     Dosage: 12.5 MG, QD
     Route: 048
  19. KYMRIAH [Suspect]
     Active Substance: TISAGENLECLEUCEL
     Indication: DIFFUSE LARGE B-CELL LYMPHOMA REFRACTORY
  20. DIFLUCAN [Concomitant]
     Active Substance: FLUCONAZOLE
     Indication: ANTIFUNGAL PROPHYLAXIS
     Dosage: 400 MG, QD
     Route: 048
     Dates: start: 20200608, end: 20200624

REACTIONS (9)
  - Pupils unequal [Recovered/Resolved]
  - Feeling abnormal [Recovered/Resolved]
  - Cytokine release syndrome [Recovered/Resolved]
  - Lymphocyte count decreased [Unknown]
  - Sleep apnoea syndrome [Unknown]
  - Pyrexia [Recovered/Resolved]
  - Confusional state [Recovered/Resolved]
  - Hypoxia [Recovered/Resolved]
  - B-cell aplasia [Unknown]

NARRATIVE: CASE EVENT DATE: 20200608
